FAERS Safety Report 7079805-7 (Version None)
Quarter: 2010Q4

REPORT INFORMATION
  Report Type: 
  Country: None (occurrence: None)
  Receive Date: 20101102
  Receipt Date: 20101027
  Transmission Date: 20110411
  Serious: Yes (Death, Hospitalization, Other)
  Sender: FDA-Public Use
  Company Number: ZA-CEPHALON-2010005708

PATIENT
  Sex: Male
  Weight: 83 kg

DRUGS (2)
  1. TREANDA [Suspect]
     Indication: NON-HODGKIN'S LYMPHOMA
     Route: 042
     Dates: start: 20100810, end: 20100908
  2. RITUXIMAB [Concomitant]
     Dates: start: 20100810, end: 20100907

REACTIONS (3)
  - ACUTE INTERSTITIAL PNEUMONITIS [None]
  - AORTIC ANEURYSM [None]
  - NON-HODGKIN'S LYMPHOMA [None]
